FAERS Safety Report 16497032 (Version 1)
Quarter: 2019Q2

REPORT INFORMATION
  Report Type: Report from Study
  Country: FR (occurrence: FR)
  Receive Date: 20190628
  Receipt Date: 20190628
  Transmission Date: 20190711
  Serious: Yes (Life-Threatening, Other)
  Sender: FDA-Public Use
  Company Number: FR-ASTRAZENECA-2019SE93846

PATIENT
  Age: 69 Year
  Sex: Male

DRUGS (1)
  1. DURVALUMAB. [Suspect]
     Active Substance: DURVALUMAB
     Indication: LUNG ADENOCARCINOMA
     Dosage: 1 COURSE EVERY 4 WEEKS
     Route: 042

REACTIONS (5)
  - Rash maculo-papular [Unknown]
  - Pruritus [Unknown]
  - Diabetes mellitus [Unknown]
  - Diabetic ketoacidosis [Unknown]
  - Asthenia [Unknown]
